FAERS Safety Report 6862963-4 (Version None)
Quarter: 2010Q2

REPORT INFORMATION
  Report Type: 
  Country: None (occurrence: None)
  Receive Date: 20100528
  Receipt Date: 20100416
  Transmission Date: 20101027
  Serious: No
  Sender: FDA-Public Use
  Company Number: 010324

PATIENT
  Sex: Female

DRUGS (1)
  1. LACOSAMIDE [Suspect]
     Indication: CONVULSION
     Dosage: ORAL
     Route: 048

REACTIONS (1)
  - MOOD ALTERED [None]
